FAERS Safety Report 11146441 (Version 2)
Quarter: 2015Q3

REPORT INFORMATION
  Report Type: Report from Study
  Country: CA (occurrence: CA)
  Receive Date: 20150528
  Receipt Date: 20150714
  Transmission Date: 20151125
  Serious: Yes (Hospitalization, Other)
  Sender: FDA-Public Use
  Company Number: PHHY2015CA038741

PATIENT
  Age: 58 Year
  Sex: Male

DRUGS (1)
  1. CLOZARIL [Suspect]
     Active Substance: CLOZAPINE
     Indication: PRODUCT USED FOR UNKNOWN INDICATION
     Dosage: UNK
     Route: 048
     Dates: start: 20150312

REACTIONS (8)
  - Haemoglobin decreased [Unknown]
  - Bronchospasm [Unknown]
  - Pyrexia [Unknown]
  - Pneumonia [Unknown]
  - Red blood cell count decreased [Unknown]
  - Clostridium difficile infection [Recovered/Resolved]
  - Haematocrit decreased [Unknown]
  - Influenza like illness [Unknown]

NARRATIVE: CASE EVENT DATE: 20150328
